FAERS Safety Report 18002098 (Version 1)
Quarter: 2020Q3

REPORT INFORMATION
  Report Type: Spontaneous
  Country: US (occurrence: US)
  Receive Date: 20200709
  Receipt Date: 20200709
  Transmission Date: 20201103
  Serious: Yes (Other)
  Sender: FDA-Public Use
  Company Number: US-ASTRAZENECA-2020SE85403

PATIENT
  Sex: Female

DRUGS (1)
  1. BYDUREON BCISE [Suspect]
     Active Substance: EXENATIDE
     Indication: TYPE 2 DIABETES MELLITUS
     Route: 065

REACTIONS (9)
  - Fear [Unknown]
  - Injection site discomfort [Unknown]
  - Fall [Unknown]
  - Contusion [Unknown]
  - Injection site pain [Unknown]
  - Injection site swelling [Unknown]
  - Rib fracture [Unknown]
  - Pain [Unknown]
  - Multiple sclerosis [Unknown]
